FAERS Safety Report 12088851 (Version 1)
Quarter: 2016Q1

REPORT INFORMATION
  Report Type: Spontaneous
  Country: PT (occurrence: PT)
  Receive Date: 20160218
  Receipt Date: 20160218
  Transmission Date: 20160526
  Serious: Yes (Other)
  Sender: FDA-Public Use
  Company Number: PT-ASTELLAS-2016US005414

PATIENT
  Age: 38 Year
  Sex: Female

DRUGS (3)
  1. FOLLICLE STIMULATING HORMONE, RECOMBINANT [Suspect]
     Active Substance: FOLLITROPIN
     Indication: INFERTILITY FEMALE
     Dosage: UNK UNK, UNKNOWN FREQ. (3 CYCLES)
  2. LETROZOLE. [Suspect]
     Active Substance: LETROZOLE
     Indication: INFERTILITY FEMALE
     Dosage: UNK UNK, UNKNOWN FREQ. (3 CYCLES)
     Route: 065
  3. TACROLIMUS. [Suspect]
     Active Substance: TACROLIMUS
     Indication: LIVER TRANSPLANT
     Dosage: 5 MG/DAY, UNKNOWN FREQUENCY
     Route: 048

REACTIONS (4)
  - Iatrogenic injury [Unknown]
  - Premature delivery [Unknown]
  - Exposure during pregnancy [Unknown]
  - Placenta accreta [Unknown]
